FAERS Safety Report 14254010 (Version 1)
Quarter: 2017Q4

REPORT INFORMATION
  Report Type: Spontaneous
  Country: CN (occurrence: CN)
  Receive Date: 20171206
  Receipt Date: 20171206
  Transmission Date: 20180321
  Serious: Yes (Other)
  Sender: FDA-Public Use
  Company Number: CN-ACCORD-061661

PATIENT
  Age: 22 Year
  Sex: Female

DRUGS (2)
  1. MYCOPHENOLIC ACID. [Suspect]
     Active Substance: MYCOPHENOLIC ACID
     Indication: PROPHYLAXIS AGAINST TRANSPLANT REJECTION
     Dates: start: 2016
  2. CICLOSPORIN [Suspect]
     Active Substance: CYCLOSPORINE
     Indication: PROPHYLAXIS AGAINST TRANSPLANT REJECTION
     Dates: start: 2016

REACTIONS (5)
  - Multiple sclerosis [Unknown]
  - Klebsiella infection [Unknown]
  - Diarrhoea [Unknown]
  - Vomiting [Unknown]
  - Purpura [Unknown]

NARRATIVE: CASE EVENT DATE: 201604
